FAERS Safety Report 25403390 (Version 2)
Quarter: 2025Q2

REPORT INFORMATION
  Report Type: Report from Study
  Country: CA (occurrence: CA)
  Receive Date: 20250605
  Receipt Date: 20250621
  Transmission Date: 20250717
  Serious: Yes (Other)
  Sender: TAKEDA
  Company Number: CA-TAKEDA-2025TUS052169

PATIENT
  Sex: Male

DRUGS (4)
  1. VEDOLIZUMAB [Suspect]
     Active Substance: VEDOLIZUMAB
     Indication: Crohn^s disease
  2. ENTOCORT [Concomitant]
     Active Substance: BUDESONIDE
  3. BUDESONIDE [Concomitant]
     Active Substance: BUDESONIDE
  4. Cortiment [Concomitant]

REACTIONS (1)
  - Crohn^s disease [Unknown]
